FAERS Safety Report 6712528-X (Version None)
Quarter: 2010Q2

REPORT INFORMATION
  Report Type: 
  Country: None (occurrence: None)
  Receive Date: 20100505
  Receipt Date: 20100505
  Transmission Date: 20101027
  Serious: Yes (Other)
  Sender: FDA-Public Use
  Company Number: None

PATIENT
  Age: 51 Year
  Sex: Female
  Weight: 136.0791 kg

DRUGS (1)
  1. CELEXA [Suspect]
     Indication: DRUG THERAPY CHANGED
     Dosage: 1 TABLET 1 DAILY
     Dates: start: 20100203, end: 20100412

REACTIONS (1)
  - ALOPECIA [None]
